FAERS Safety Report 7390199-X (Version None)
Quarter: 2011Q2

REPORT INFORMATION
  Report Type: 
  Country: None (occurrence: None)
  Receive Date: 20110401
  Receipt Date: 20110322
  Transmission Date: 20111010
  Serious: Yes (Other)
  Sender: FDA-Public Use
  Company Number: US-ROCHE-710089

PATIENT
  Sex: Female
  Weight: 67.1 kg

DRUGS (12)
  1. ELAVIL [Concomitant]
  2. XANAX [Concomitant]
  3. PEGASYS [Suspect]
     Indication: HEPATITIS C
     Route: 058
     Dates: start: 20100301, end: 20100501
  4. NEXIUM [Concomitant]
  5. METFORMIN [Concomitant]
  6. RIBAVIRIN [Suspect]
     Route: 048
     Dates: start: 20090101
  7. MORPHINE [Concomitant]
  8. RIBAVIRIN [Suspect]
     Indication: HEPATITIS C
     Route: 048
     Dates: start: 20090101
  9. BACLOFEN [Concomitant]
  10. PHENERGAN HCL [Concomitant]
  11. ZOFRAN [Concomitant]
  12. CRESTOR [Concomitant]

REACTIONS (26)
  - AMNESIA [None]
  - WEIGHT DECREASED [None]
  - DRY SKIN [None]
  - DEPRESSION [None]
  - BONE PAIN [None]
  - FATIGUE [None]
  - WHITE BLOOD CELL COUNT DECREASED [None]
  - NEGATIVE THOUGHTS [None]
  - SYNCOPE [None]
  - NAUSEA [None]
  - HAEMATOLOGY TEST ABNORMAL [None]
  - FIBROMYALGIA [None]
  - PYREXIA [None]
  - DELIRIUM [None]
  - APHAGIA [None]
  - CONFUSIONAL STATE [None]
  - MENTAL DISORDER [None]
  - ANXIETY [None]
  - CRYING [None]
  - ATROPHY [None]
  - DRY MOUTH [None]
  - INSOMNIA [None]
  - NERVOUSNESS [None]
  - PSORIASIS [None]
  - ORAL HERPES [None]
  - PAIN IN EXTREMITY [None]
